FAERS Safety Report 7131928-X (Version None)
Quarter: 2010Q4

REPORT INFORMATION
  Report Type: 
  Country: None (occurrence: None)
  Receive Date: 20101117
  Receipt Date: 20101103
  Transmission Date: 20110411
  Serious: No
  Sender: FDA-Public Use
  Company Number: 2010AP002342

PATIENT
  Sex: Female

DRUGS (1)
  1. CITALOPRAM HYDROBROMIDE [Suspect]
     Dosage: 40 MG; TRPL
     Route: 064
     Dates: start: 20070701

REACTIONS (1)
  - DEAFNESS NEUROSENSORY [None]
